FAERS Safety Report 24547375 (Version 2)
Quarter: 2024Q4

REPORT INFORMATION
  Report Type: Spontaneous
  Country: US (occurrence: US)
  Receive Date: 20241025
  Receipt Date: 20241125
  Transmission Date: 20250115
  Serious: No
  Sender: ROCHE
  Company Number: US-ROCHE-10000115174

PATIENT
  Sex: Female
  Weight: 58.97 kg

DRUGS (24)
  1. XOLAIR PFS [Suspect]
     Active Substance: OMALIZUMAB
     Indication: Idiopathic urticaria
     Dosage: STRENGTH: 300MG/2ML
     Route: 058
     Dates: start: 202406
  2. XOLAIR PFS [Suspect]
     Active Substance: OMALIZUMAB
  3. TRETINOIN [Concomitant]
     Active Substance: TRETINOIN
  4. PRISTIQ EXTENDED-RELEASE [Concomitant]
     Active Substance: DESVENLAFAXINE SUCCINATE
  5. ABILIFY [Concomitant]
     Active Substance: ARIPIPRAZOLE
  6. TOPAMAX [Concomitant]
     Active Substance: TOPIRAMATE
  7. XANAX [Concomitant]
     Active Substance: ALPRAZOLAM
  8. ANASPAZ [Concomitant]
     Active Substance: HYOSCYAMINE SULFATE
  9. GLYCINE [Concomitant]
     Active Substance: GLYCINE
  10. MIRALAX [Concomitant]
     Active Substance: POLYETHYLENE GLYCOL 3350
  11. MONTELUKAST [Concomitant]
     Active Substance: MONTELUKAST
  12. DIETARY SUPPLEMENT [Concomitant]
     Active Substance: DIETARY SUPPLEMENT
  13. VITAMIN D3 [Concomitant]
     Active Substance: CHOLECALCIFEROL
  14. ZANAFLEX [Concomitant]
     Active Substance: TIZANIDINE HYDROCHLORIDE
  15. METHSCOPOLAMINE BROMIDE [Concomitant]
     Active Substance: METHSCOPOLAMINE BROMIDE
  16. PROCHLORPERAZINE MALEATE [Concomitant]
     Active Substance: PROCHLORPERAZINE MALEATE
  17. CALCIUM [Concomitant]
     Active Substance: CALCIUM
  18. HYOSCYAMINE SULFATE [Concomitant]
     Active Substance: HYOSCYAMINE SULFATE
  19. FIORICET [Concomitant]
     Active Substance: ACETAMINOPHEN\BUTALBITAL\CAFFEINE
  20. NAPROXEN [Concomitant]
     Active Substance: NAPROXEN
  21. MAGNESIUM [Concomitant]
     Active Substance: MAGNESIUM
  22. LEXAPRO [Concomitant]
     Active Substance: ESCITALOPRAM OXALATE
  23. FISH OIL [Concomitant]
     Active Substance: FISH OIL
  24. FLOVENT [Concomitant]
     Active Substance: FLUTICASONE PROPIONATE

REACTIONS (2)
  - Drug ineffective [Unknown]
  - Headache [Unknown]
